FAERS Safety Report 18611996 (Version 1)
Quarter: 2020Q4

REPORT INFORMATION
  Report Type: Spontaneous
  Country: US (occurrence: US)
  Receive Date: 20201214
  Receipt Date: 20201214
  Transmission Date: 20210114
  Serious: No
  Sender: FDA-Public Use
  Company Number: None

PATIENT
  Age: 44 Year
  Sex: Female
  Weight: 118.4 kg

DRUGS (2)
  1. REGENERON [Concomitant]
     Active Substance: UNSPECIFIED INGREDIENT
     Dates: start: 20201211, end: 20201211
  2. CASIRIVIMAB/IMDEVIMAB [Suspect]
     Active Substance: CASIRIVIMAB\IMDEVIMAB
     Indication: COVID-19
     Route: 042
     Dates: start: 20201211, end: 20201211

REACTIONS (6)
  - Hypersensitivity [None]
  - Pruritus [None]
  - Hyperhidrosis [None]
  - Erythema [None]
  - Anxiety [None]
  - Flushing [None]

NARRATIVE: CASE EVENT DATE: 20201211
